FAERS Safety Report 6999612-0 (Version None)
Quarter: 2010Q3

REPORT INFORMATION
  Report Type: 
  Country: None (occurrence: None)
  Receive Date: 20100920
  Receipt Date: 20100623
  Transmission Date: 20110219
  Serious: No
  Sender: FDA-Public Use
  Company Number: US-ASTRAZENECA-2010SE29388

PATIENT
  Age: 57 Year
  Sex: Female
  Weight: 100.7 kg

DRUGS (2)
  1. SEROQUEL [Suspect]
     Indication: BIPOLAR DISORDER
     Route: 048
     Dates: start: 20050101, end: 20100501
  2. SEROQUEL [Suspect]
     Route: 048
     Dates: start: 20100601

REACTIONS (3)
  - CRYING [None]
  - DEPRESSION [None]
  - GOUT [None]
